FAERS Safety Report 21203718 (Version 9)
Quarter: 2023Q2

REPORT INFORMATION
  Report Type: Report from Study
  Country: US (occurrence: US)
  Receive Date: 20220811
  Receipt Date: 20230516
  Transmission Date: 20230722
  Serious: Yes (Other)
  Sender: FDA-Public Use
  Company Number: US-NOVARTISTESTPH-NVSC2022US181868

PATIENT
  Age: 49 Year
  Sex: Male

DRUGS (1)
  1. KESIMPTA [Suspect]
     Active Substance: OFATUMUMAB
     Indication: Multiple sclerosis
     Dosage: 20 MG, QMO
     Route: 058
     Dates: start: 20220601

REACTIONS (9)
  - Multiple sclerosis relapse [Unknown]
  - Heat exhaustion [Unknown]
  - Dysstasia [Unknown]
  - Bowel movement irregularity [Unknown]
  - Escherichia urinary tract infection [Unknown]
  - Urinary tract infection [Recovered/Resolved]
  - Amnesia [Recovered/Resolved]
  - Mental fatigue [Unknown]
  - Muscle strain [Unknown]

NARRATIVE: CASE EVENT DATE: 20220720
